FAERS Safety Report 5229540-2 (Version None)
Quarter: 2007Q1

REPORT INFORMATION
  Report Type: 
  Country: None (occurrence: None)
  Receive Date: 20070201
  Receipt Date: 20070119
  Transmission Date: 20070707
  Serious: Yes (Other)
  Sender: FDA-Public Use
  Company Number: 2007304597

PATIENT
  Age: 50 Year
  Sex: Female
  Weight: 54.4 kg

DRUGS (3)
  1. DIPHENHYDRAMINE HCL [Suspect]
     Indication: INSOMNIA
     Dosage: 25 MG (1-2 TABLETS) DAILY AT BEDTIME (25 MG), ORAL
     Route: 048
  2. VARENICLINE (VARENICLINE) [Suspect]
     Indication: SMOKING CESSATION THERAPY
     Dosage: 0.5 + 1 MG QD THEN 0.5MG BID THEN BID - SEE IMAGE
     Dates: start: 20070109
  3. IBUPROFEN [Concomitant]

REACTIONS (5)
  - DRUG DEPENDENCE [None]
  - DRUG EFFECT DECREASED [None]
  - FATIGUE [None]
  - NAUSEA [None]
  - SOMNOLENCE [None]
